FAERS Safety Report 23208423 (Version 1)
Quarter: 2023Q4

REPORT INFORMATION
  Report Type: Spontaneous
  Country: DE (occurrence: DE)
  Receive Date: 20231121
  Receipt Date: 20231121
  Transmission Date: 20240110
  Serious: Yes (Hospitalization)
  Sender: FDA-Public Use
  Company Number: DE-DCGMA-22199823

PATIENT
  Age: 71 Year
  Sex: Female
  Weight: 70 kg

DRUGS (5)
  1. SIMVASTATIN [Interacting]
     Active Substance: SIMVASTATIN
     Dosage: 20 MILLIGRAM, QD
     Route: 048
  2. METHOTREXATE SODIUM [Suspect]
     Active Substance: METHOTREXATE SODIUM
     Indication: Psoriasis
     Dosage: APPLICATION EVERY 14 DAYS
     Route: 058
  3. OMEPRAZOLE [Suspect]
     Active Substance: OMEPRAZOLE
     Dosage: 20 MILLIGRAM, QD
     Route: 048
  4. FOLIC ACID [Interacting]
     Active Substance: FOLIC ACID
     Dosage: APPLICATION 1 D AFTER MTX (METHOTREXAT)
     Route: 048
  5. METAMIZOLE [Suspect]
     Active Substance: METAMIZOLE
     Indication: Oral pain
     Dosage: EVERY 3 HOURS 1 TABLET
     Route: 048
     Dates: start: 20221011, end: 20221016

REACTIONS (4)
  - Acute kidney injury [Recovering/Resolving]
  - Pancytopenia [Recovering/Resolving]
  - Stomatitis [Recovering/Resolving]
  - Dehydration [Recovering/Resolving]

NARRATIVE: CASE EVENT DATE: 20221001
